FAERS Safety Report 7438020-5 (Version None)
Quarter: 2011Q2

REPORT INFORMATION
  Report Type: 
  Country: None (occurrence: None)
  Receive Date: 20110426
  Receipt Date: 20101009
  Transmission Date: 20111010
  Serious: No
  Sender: FDA-Public Use
  Company Number: US-MYLANLABS-2010S1016632

PATIENT
  Sex: Female

DRUGS (6)
  1. VAGIFEM [Concomitant]
  2. ASPIRIN [Concomitant]
  3. LISINOPRIL [Concomitant]
  4. VITAMIN D [Concomitant]
  5. CALCIUM [Concomitant]
  6. NITROFURANTOIN MONOHYDRATE/MACROCRYSTALS [Suspect]
     Indication: URINARY TRACT INFECTION
     Route: 048
     Dates: start: 20100901, end: 20100903

REACTIONS (5)
  - NAUSEA [None]
  - DIARRHOEA [None]
  - RASH [None]
  - HEADACHE [None]
  - EYE PAIN [None]
